FAERS Safety Report 4625157-9 (Version None)
Quarter: 2005Q2

REPORT INFORMATION
  Report Type: 
  Country: None (occurrence: None)
  Receive Date: 20050325
  Receipt Date: 20050119
  Transmission Date: 20051028
  Serious: No
  Sender: FDA-Public Use
  Company Number: USA050188716

PATIENT
  Age: 78 Year
  Sex: Female

DRUGS (6)
  1. FORTEO [Suspect]
     Dates: start: 20040701
  2. PRAVACHOL [Concomitant]
  3. ZETIA [Concomitant]
  4. SYNTHROID [Concomitant]
  5. ARTHROTEC [Concomitant]
  6. NEXIUM [Concomitant]

REACTIONS (5)
  - CHEILITIS [None]
  - LIP DRY [None]
  - LIP PAIN [None]
  - MYALGIA [None]
  - SWELLING FACE [None]
